FAERS Safety Report 8221926-7 (Version None)
Quarter: 2012Q1

REPORT INFORMATION
  Report Type: 
  Country: None (occurrence: None)
  Receive Date: 20120320
  Receipt Date: 20120312
  Transmission Date: 20120608
  Serious: Yes (Other)
  Sender: FDA-Public Use
  Company Number: CA-JNJFOC-20120306206

PATIENT
  Sex: Male
  Weight: 78 kg

DRUGS (24)
  1. RABEPRAZOLE SODIUM [Concomitant]
     Route: 065
  2. ZOPICLONE [Concomitant]
     Route: 065
  3. DIAMICRON [Concomitant]
     Route: 065
  4. MARINOL [Concomitant]
     Route: 065
  5. VITAMIN D [Concomitant]
     Route: 065
  6. CLONAZEPAM [Concomitant]
     Route: 065
  7. PERINDOPRIL ERBUMINE [Concomitant]
     Route: 065
  8. QUETIAPINE [Concomitant]
     Route: 065
  9. ABACAVIR SULFATE/LAMIVUDINE [Concomitant]
     Route: 065
  10. GABAPENTIN [Concomitant]
     Route: 065
  11. METFORMIN HCL [Concomitant]
     Route: 065
  12. REMICADE [Suspect]
     Indication: ANKYLOSING SPONDYLITIS
     Route: 042
     Dates: start: 20111209
  13. ADVAIR DISKUS 100/50 [Concomitant]
     Route: 065
  14. POTASSIUM [Concomitant]
     Route: 065
  15. TAMSULOSIN HCL [Concomitant]
     Route: 065
  16. OXAZEPAM [Concomitant]
     Route: 065
  17. MIRTAZAPINE [Concomitant]
     Route: 065
  18. SULFASALAZINE [Concomitant]
     Route: 065
  19. ALLOPURINOL [Concomitant]
     Route: 065
  20. LIPITOR [Concomitant]
     Route: 065
  21. LEVOTHYROXINE SODIUM [Concomitant]
     Route: 065
  22. RALTEGRAVIR [Concomitant]
     Route: 065
  23. HYDROMORPHONE HCL [Concomitant]
     Route: 065
  24. ATIVAN [Concomitant]
     Route: 065

REACTIONS (1)
  - NEPHROLITHIASIS [None]
